FAERS Safety Report 24894741 (Version 1)
Quarter: 2025Q1

REPORT INFORMATION
  Report Type: Spontaneous
  Country: US (occurrence: None)
  Receive Date: 20250127
  Receipt Date: 20250127
  Transmission Date: 20250409
  Serious: Yes (Disabling, Other)
  Sender: FDA-CTU
  Company Number: None

PATIENT
  Age: 28 Year
  Sex: Male
  Weight: 74.25 kg

DRUGS (2)
  1. EFFEXOR [Suspect]
     Active Substance: VENLAFAXINE HYDROCHLORIDE
     Indication: Encephalitis autoimmune
     Dosage: OTHER QUANTITY : 1 CAPSULE(S);?FREQUENCY : AT BEDTIME;?
     Route: 048
  2. NORTRIPTYLINE [Suspect]
     Active Substance: NORTRIPTYLINE

REACTIONS (9)
  - Sexual dysfunction [None]
  - Emotional disorder [None]
  - Anhedonia [None]
  - Apathy [None]
  - Anorgasmia [None]
  - Cognitive disorder [None]
  - Memory impairment [None]
  - Disturbance in attention [None]
  - Insomnia [None]

NARRATIVE: CASE EVENT DATE: 20220101
